FAERS Safety Report 9046165 (Version 2)
Quarter: 2013Q1

REPORT INFORMATION
  Report Type: Spontaneous
  Country: US (occurrence: US)
  Receive Date: 20130201
  Receipt Date: 20130326
  Transmission Date: 20140127
  Serious: Yes (Hospitalization, Other)
  Sender: FDA-Public Use
  Company Number: PHEH2013US002768

PATIENT
  Sex: Female
  Weight: 52.61 kg

DRUGS (10)
  1. GILENYA [Suspect]
     Indication: MULTIPLE SCLEROSIS
     Dosage: 0.5 MG, QD
     Route: 048
     Dates: start: 201106, end: 201301
  2. SINGULAIR [Concomitant]
     Dosage: 10 MG, UNK
  3. PREMARIN [Concomitant]
     Dosage: 0.9 MG, UNK
  4. GABAPENTIN [Concomitant]
     Dosage: 300 MG, UNK
  5. VITAMIIN C [Concomitant]
     Dosage: 1000 MG, UNK
  6. TIZANIDINE [Concomitant]
     Dosage: 4 MG, UNK
  7. EPIPEN [Concomitant]
     Dosage: 0.3 MG, UNK
  8. PROPOXYPHENE N/APAP [Concomitant]
     Dosage: 65-650 MG
  9. CALCIN [Concomitant]
  10. COMBIVENT [Concomitant]

REACTIONS (4)
  - Atrial fibrillation [Unknown]
  - Lung infection [Unknown]
  - Dyspnoea [Unknown]
  - Heart rate decreased [Unknown]
